FAERS Safety Report 16490068 (Version 1)
Quarter: 2019Q3

REPORT INFORMATION
  Report Type: Spontaneous
  Country: US (occurrence: US)
  Receive Date: 20190627
  Receipt Date: 20190627
  Transmission Date: 20191004
  Serious: Yes (Disabling)
  Sender: FDA-Public Use
  Company Number: None

PATIENT
  Age: 74 Year
  Sex: Male

DRUGS (1)
  1. LOSARTAN  100MG [Suspect]
     Active Substance: LOSARTAN
     Indication: BLOOD PRESSURE INCREASED
     Dosage: ?          QUANTITY:270 TABLET(S);?
     Route: 048
     Dates: start: 20150110, end: 20190627

REACTIONS (1)
  - Recalled product administered [None]
